FAERS Safety Report 15692055 (Version 2)
Quarter: 2018Q4

REPORT INFORMATION
  Report Type: Spontaneous
  Country: US (occurrence: US)
  Receive Date: 20181205
  Receipt Date: 20181214
  Transmission Date: 20190205
  Serious: Yes (Life-Threatening, Hospitalization, Other)
  Sender: FDA-Public Use
  Company Number: US-MYLANLABS-2018M1090021

PATIENT
  Age: 49 Year
  Sex: Female
  Weight: 57 kg

DRUGS (8)
  1. DOXYCYCLINE. [Suspect]
     Active Substance: DOXYCYCLINE
     Indication: PRODUCT USED FOR UNKNOWN INDICATION
     Dosage: 100 MILLIGRAM, BID
     Route: 042
     Dates: start: 20180424
  2. CLARITHROMYCIN. [Suspect]
     Active Substance: CLARITHROMYCIN
     Indication: MYCOBACTERIUM CHELONAE INFECTION
     Dosage: UNK
     Dates: start: 20180322, end: 20180418
  3. PREDNISONE. [Suspect]
     Active Substance: PREDNISONE
     Indication: PRODUCT USED FOR UNKNOWN INDICATION
     Dosage: 6 MILLIGRAM
  4. IMIPENEM [Suspect]
     Active Substance: IMIPENEM
     Dosage: 1 GRAM, Q8H
     Route: 042
     Dates: start: 20180322, end: 20181114
  5. CLOFAZIMINE [Suspect]
     Active Substance: CLOFAZIMINE
     Indication: MYCOBACTERIUM CHELONAE INFECTION
     Dosage: 100 MILLIGRAM, QD
     Route: 048
  6. IMIPENEM [Suspect]
     Active Substance: IMIPENEM
     Indication: MYCOBACTERIUM CHELONAE INFECTION
     Dosage: 1 GRAM, Q12H
     Route: 042
     Dates: start: 20180322
  7. TOBRAMYCIN. [Suspect]
     Active Substance: TOBRAMYCIN
     Indication: MYCOBACTERIUM CHELONAE INFECTION
     Dosage: 320 MILLIGRAM, QD
     Route: 042
     Dates: start: 20180322, end: 20180716
  8. CLARITHROMYCIN. [Suspect]
     Active Substance: CLARITHROMYCIN
     Dosage: 500 MILLIGRAM, BID
     Route: 048
     Dates: start: 20180322, end: 20180418

REACTIONS (12)
  - Cellulitis [Unknown]
  - Abscess [Unknown]
  - Vomiting [Recovered/Resolved]
  - Granuloma [Unknown]
  - Soft tissue mass [Unknown]
  - Liver function test increased [Recovered/Resolved]
  - Nausea [Recovered/Resolved]
  - Ototoxicity [Recovered/Resolved with Sequelae]
  - Inflammation [Unknown]
  - Angioedema [Recovered/Resolved]
  - Fibrosis [Unknown]
  - Drug intolerance [Unknown]

NARRATIVE: CASE EVENT DATE: 20180411
